FAERS Safety Report 20278897 (Version 1)
Quarter: 2022Q1

REPORT INFORMATION
  Report Type: Spontaneous
  Country: CN (occurrence: None)
  Receive Date: 20220103
  Receipt Date: 20220103
  Transmission Date: 20220424
  Serious: Yes (Other)
  Sender: FDA-Public Use
  Company Number: CN-ROCHE-2987573

PATIENT
  Age: 71 Year
  Sex: Male

DRUGS (4)
  1. BEVACIZUMAB [Suspect]
     Active Substance: BEVACIZUMAB
     Indication: Adenocarcinoma of colon
     Dosage: 500MG IN A CYCLE, USE 7 CYCLES
     Route: 065
     Dates: start: 20210702
  2. CAPECITABINE [Suspect]
     Active Substance: CAPECITABINE
     Indication: Adenocarcinoma of colon
     Dosage: TWO TIMES A DAY BY ORAL, 2.0G IN THE MORNING AND 1.5G IN THE EVENING. USE IN DAY1 TO DAY14 IN EVERY
     Route: 048
     Dates: start: 20210702
  3. CAPECITABINE [Suspect]
     Active Substance: CAPECITABINE
     Dosage: 1.5G BID, USE IN DAY1 TO DAY14 IN 7TH CYCLE.
     Route: 048
  4. OXALIPLATIN [Concomitant]
     Active Substance: OXALIPLATIN
     Indication: Adenocarcinoma of colon
     Dosage: 240MG IN A CYCLE, USE 7 CYCLES
     Dates: start: 20210702

REACTIONS (2)
  - Platelet count decreased [Unknown]
  - Myelosuppression [Unknown]
